FAERS Safety Report 18987439 (Version 1)
Quarter: 2021Q1

REPORT INFORMATION
  Report Type: Spontaneous
  Country: US (occurrence: US)
  Receive Date: 20210309
  Receipt Date: 20210309
  Transmission Date: 20210420
  Serious: Yes (Other)
  Sender: FDA-Public Use
  Company Number: None

PATIENT
  Sex: Female
  Weight: 96.75 kg

DRUGS (2)
  1. KENALOG [Suspect]
     Active Substance: TRIAMCINOLONE ACETONIDE
     Indication: MULTIPLE ALLERGIES
  2. FISH OIL [Concomitant]
     Active Substance: FISH OIL

REACTIONS (14)
  - Nervousness [None]
  - Weight decreased [None]
  - Anxiety [None]
  - Pollakiuria [None]
  - Hot flush [None]
  - Chills [None]
  - Irritability [None]
  - Decreased appetite [None]
  - Panic attack [None]
  - Agitation [None]
  - Dizziness [None]
  - Insomnia [None]
  - Palpitations [None]
  - Depression [None]
